FAERS Safety Report 8837566 (Version 1)
Quarter: 2012Q4

REPORT INFORMATION
  Report Type: 
  Country: US (occurrence: US)
  Receive Date: 20121012
  Receipt Date: 20121012
  Transmission Date: 20130627
  Serious: No
  Sender: FDA-Public Use
  Company Number: US-PFIZER INC-2012253572

PATIENT
  Age: 41 Year
  Sex: Male
  Weight: 92.52 kg

DRUGS (5)
  1. LYRICA [Suspect]
     Indication: NERVOUS SYSTEM DISORDER
     Dosage: 100 mg, 3x/day
     Route: 048
     Dates: start: 2012, end: 2012
  2. LYRICA [Suspect]
     Indication: PAIN IN EXTREMITY
  3. LYRICA [Suspect]
     Indication: ARTHRALGIA
  4. OXCARBAZEPINE [Concomitant]
     Indication: ANGER
     Dosage: 600 mg, 2x/day
     Dates: start: 2010
  5. HYDROXYZINE HYDROCHLORIDE [Concomitant]
     Indication: ANXIETY
     Dosage: 50 mg, 2x/day

REACTIONS (1)
  - Weight increased [Recovering/Resolving]
